FAERS Safety Report 7164420-7 (Version None)
Quarter: 2010Q4

REPORT INFORMATION
  Report Type: 
  Country: None (occurrence: None)
  Receive Date: 20101215
  Receipt Date: 20101207
  Transmission Date: 20110411
  Serious: Yes (Hospitalization, Other)
  Sender: FDA-Public Use
  Company Number: GB-ELI_LILLY_AND_COMPANY-GB200909000147

PATIENT
  Age: 58 Year
  Sex: Male
  Weight: 117 kg

DRUGS (13)
  1. BYETTA [Suspect]
     Indication: TYPE 2 DIABETES MELLITUS
     Dosage: 10 UG, 2/D
     Route: 058
     Dates: start: 20090201, end: 20090803
  2. ASPIRIN [Concomitant]
  3. ATENOLOL [Concomitant]
  4. ATORVASTATIN [Concomitant]
  5. BEZALIP-MONO [Concomitant]
  6. BUTRANS [Concomitant]
     Route: 062
  7. DOTHIEPIN HYDROCHLORIDE [Concomitant]
  8. LANSOPRAZOLE [Concomitant]
  9. LISINOPRIL [Concomitant]
  10. INSULIN [Concomitant]
     Indication: TYPE 2 DIABETES MELLITUS
     Dosage: 126 U, DAILY (1/D)
  11. INSULIN [Concomitant]
     Dosage: UNK, UNKNOWN
  12. METFORMIN [Concomitant]
     Indication: TYPE 2 DIABETES MELLITUS
     Dosage: 1.5 G, DAILY (1/D)
  13. METFORMIN [Concomitant]
     Dosage: 1000 MG, DAILY (1/D)

REACTIONS (6)
  - BLOOD PHOSPHORUS DECREASED [None]
  - GRAND MAL CONVULSION [None]
  - HYPOMAGNESAEMIA [None]
  - NAUSEA [None]
  - VOMITING [None]
  - WEIGHT DECREASED [None]
